FAERS Safety Report 8102846-5 (Version None)
Quarter: 2012Q1

REPORT INFORMATION
  Report Type: 
  Country: None (occurrence: None)
  Receive Date: 20120201
  Receipt Date: 20120117
  Transmission Date: 20120608
  Serious: Yes (Hospitalization, Other)
  Sender: FDA-Public Use
  Company Number: CA-JNJFOC-20120112899

PATIENT
  Sex: Female
  Weight: 43 kg

DRUGS (3)
  1. REMICADE [Suspect]
     Route: 042
     Dates: start: 20110825
  2. REMICADE [Suspect]
     Indication: CROHN'S DISEASE
     Dosage: 4TH DOSE
     Route: 042
     Dates: start: 20111202
  3. REMICADE [Suspect]
     Route: 042
     Dates: start: 20120101

REACTIONS (1)
  - CROHN'S DISEASE [None]
